FAERS Safety Report 7676727-5 (Version None)
Quarter: 2011Q3

REPORT INFORMATION
  Report Type: 
  Country: None (occurrence: None)
  Receive Date: 20110811
  Receipt Date: 20110801
  Transmission Date: 20111222
  Serious: Yes (Hospitalization)
  Sender: FDA-Public Use
  Company Number: US-JNJFOC-20110801472

PATIENT
  Sex: Female
  Weight: 24.7 kg

DRUGS (4)
  1. METRONIDAZOLE [Concomitant]
  2. INFLIXIMAB, RECOMBINANT [Suspect]
     Indication: INFLAMMATORY BOWEL DISEASE
     Route: 042
     Dates: start: 20090911
  3. INFLIXIMAB, RECOMBINANT [Suspect]
     Route: 042
     Dates: start: 20090731
  4. METRONIDAZOLE [Concomitant]

REACTIONS (3)
  - POUCHITIS [None]
  - DIARRHOEA [None]
  - DEHYDRATION [None]
